FAERS Safety Report 6516140-7 (Version None)
Quarter: 2009Q4

REPORT INFORMATION
  Report Type: 
  Country: None (occurrence: None)
  Receive Date: 20091223
  Receipt Date: 20091211
  Transmission Date: 20100525
  Serious: Yes (Other)
  Sender: FDA-Public Use
  Company Number: US-JNJFOC-20091005484

PATIENT
  Age: 51 Year
  Sex: Male

DRUGS (1)
  1. NUCYNTA [Suspect]
     Indication: PAIN
     Dosage: 2-3 TABLETS
     Route: 048

REACTIONS (2)
  - HALLUCINATION [None]
  - OVERDOSE [None]
